FAERS Safety Report 11058453 (Version 1)
Quarter: 2015Q2

REPORT INFORMATION
  Report Type: Spontaneous
  Country: US (occurrence: None)
  Receive Date: 20150420
  Receipt Date: 20150420
  Transmission Date: 20150821
  Serious: No
  Sender: FDA-Public Use
  Company Number: AEGR001121

PATIENT
  Age: 49 Year
  Sex: Male

DRUGS (15)
  1. IMDUR (ISOSORBIDE MONONITRATE) [Concomitant]
  2. NORVASC (AMIODIPINE BESILATE) [Concomitant]
  3. NITROGLYCERIN. [Concomitant]
     Active Substance: NITROGLYCERIN
  4. MULTIVITAMIN (VITAMINS NOS) [Concomitant]
     Active Substance: VITAMINS
  5. JUXTAPID [Suspect]
     Active Substance: LOMITAPIDE MESYLATE
     Indication: TYPE IIA HYPERLIPIDAEMIA
     Route: 048
     Dates: start: 201305
  6. BYSTOLIC [Concomitant]
     Active Substance: NEBIVOLOL HYDROCHLORIDE
  7. COZAAR [Concomitant]
     Active Substance: LOSARTAN POTASSIUM
  8. PLAVIX (CLOPIDOGREL BISULFATE) [Concomitant]
  9. TRICOR [Concomitant]
     Active Substance: FENOFIBRATE
  10. ATORVASTATIN (ATORVASTATIN CALCIUM) [Concomitant]
  11. FLOVENT HFA (FLUTICASONE PROPIONATE) [Concomitant]
  12. RANEXA (RANOLAZINE) [Concomitant]
  13. COUMADIN [Concomitant]
     Active Substance: WARFARIN SODIUM
  14. XANAX [Concomitant]
     Active Substance: ALPRAZOLAM
  15. ASPIRIN (ACETYLSALICYLIC ACID) [Concomitant]
     Active Substance: ASPIRIN

REACTIONS (2)
  - Lipids abnormal [None]
  - Liver function test abnormal [None]
